FAERS Safety Report 5259046-6 (Version None)
Quarter: 2007Q1

REPORT INFORMATION
  Report Type: 
  Country: None (occurrence: None)
  Receive Date: 20070308
  Receipt Date: 20070219
  Transmission Date: 20070707
  Serious: Yes (Hospitalization)
  Sender: FDA-Public Use
  Company Number: GB-BRISTOL-MYERS SQUIBB COMPANY-13704895

PATIENT
  Sex: Female

DRUGS (7)
  1. METFORMIN HCL [Suspect]
     Route: 048
  2. COAPROVEL [Suspect]
  3. RIMONABANT [Suspect]
     Route: 048
  4. ASPIRIN [Concomitant]
  5. ATENOLOL [Concomitant]
  6. LIPITOR [Concomitant]
  7. ROSIGLITAZONE [Concomitant]

REACTIONS (3)
  - BLOOD CREATINE INCREASED [None]
  - RENAL FAILURE [None]
  - VOMITING [None]
